FAERS Safety Report 6079876-0 (Version None)
Quarter: 2009Q1

REPORT INFORMATION
  Report Type: 
  Country: None (occurrence: None)
  Receive Date: 20090212
  Receipt Date: 20090203
  Transmission Date: 20090719
  Serious: Yes (Death)
  Sender: FDA-Public Use
  Company Number: 2009SP002966

PATIENT
  Age: 5 Month
  Sex: Female

DRUGS (2)
  1. BETAMETHASONE SODIUM PHOSPHATE [Suspect]
     Indication: DYSPNOEA
     Dosage: 2 MG;QD;IV
     Route: 042
     Dates: start: 20090124, end: 20090202
  2. NETROMYCIN [Suspect]
     Indication: BRONCHOPNEUMOPATHY
     Dosage: 25 MG;QD;IM
     Route: 030
     Dates: start: 20090124, end: 20090202

REACTIONS (2)
  - EPISTAXIS [None]
  - HAEMATEMESIS [None]
